FAERS Safety Report 16682314 (Version 1)
Quarter: 2019Q3

REPORT INFORMATION
  Report Type: Spontaneous
  Country: US (occurrence: US)
  Receive Date: 20190808
  Receipt Date: 20190808
  Transmission Date: 20191004
  Serious: No
  Sender: FDA-Public Use
  Company Number: US-IGSA-SR10008855

PATIENT
  Age: 47 Year
  Sex: Female
  Weight: 104.5 kg

DRUGS (4)
  1. EPINEPHRINE HCL [Concomitant]
     Active Substance: EPINEPHRINE
     Dosage: 0.3 MG, UNK
     Route: 030
  2. GAMUNEX-C [Suspect]
     Active Substance: HUMAN IMMUNOGLOBULIN G
     Indication: CHRONIC INFLAMMATORY DEMYELINATING POLYRADICULONEUROPATHY
     Dosage: 60 G, Q.4WK.
     Route: 042
     Dates: start: 20190725, end: 20190725
  3. GAMUNEX-C [Suspect]
     Active Substance: HUMAN IMMUNOGLOBULIN G
     Dosage: 60 G, Q.4WK.
     Route: 042
     Dates: start: 20190619
  4. NORMAL SALINE [Concomitant]
     Active Substance: SODIUM CHLORIDE
     Dosage: UNK
     Route: 042

REACTIONS (4)
  - Urticaria [Recovered/Resolved]
  - Headache [Recovered/Resolved]
  - Somnolence [Recovered/Resolved]
  - Pruritus [Recovered/Resolved]

NARRATIVE: CASE EVENT DATE: 20190619
